FAERS Safety Report 4694450-6 (Version None)
Quarter: 2005Q2

REPORT INFORMATION
  Report Type: 
  Country: None (occurrence: None)
  Receive Date: 20050614
  Receipt Date: 20050321
  Transmission Date: 20051028
  Serious: No
  Sender: FDA-Public Use
  Company Number: USA050393746

PATIENT
  Age: 73 Year
  Sex: Male
  Weight: 82 kg

DRUGS (5)
  1. CIALIS [Suspect]
     Indication: ERECTILE DYSFUNCTION
     Dosage: 20 MG
     Dates: start: 20050318
  2. TOPROL-XL [Concomitant]
  3. ARICEPT [Concomitant]
  4. NORVASC [Concomitant]
  5. LISINOPRIL AND HYDROCHLOROTHIAZIDE [Concomitant]

REACTIONS (1)
  - THERAPEUTIC RESPONSE DECREASED [None]
